FAERS Safety Report 9078071 (Version 1)
Quarter: 2013Q1

REPORT INFORMATION
  Report Type: Report from Study
  Country: US (occurrence: US)
  Receive Date: 20130130
  Receipt Date: 20130130
  Transmission Date: 20140127
  Serious: No
  Sender: FDA-Public Use
  Company Number: US-ABBOTT-12P-163-0955682-00

PATIENT
  Age: 81 Year
  Sex: Male

DRUGS (19)
  1. HUMIRA 40 MG/0.8 ML PEN [Suspect]
     Indication: COLITIS
     Dates: start: 20120607, end: 20120607
  2. HUMIRA 40 MG/0.8 ML PEN [Suspect]
     Dates: start: 20120622, end: 20120622
  3. SERTRALINE [Concomitant]
     Indication: AFFECTIVE DISORDER
  4. TRAZODONE [Concomitant]
     Indication: INSOMNIA
  5. INSULIN DETEMIR [Concomitant]
     Indication: DIABETES MELLITUS
  6. FINASTERIDE [Concomitant]
     Indication: PROSTATIC DISORDER
  7. TERAZOSIN [Concomitant]
     Indication: PROSTATIC DISORDER
  8. BALSALAZIDE [Concomitant]
     Indication: CROHN^S DISEASE
  9. AZATHIOPRINE [Concomitant]
     Indication: CROHN^S DISEASE
  10. LOPERAMIDE [Concomitant]
     Indication: DIARRHOEA
  11. OMEPRAZOLE [Concomitant]
     Indication: GASTROOESOPHAGEAL REFLUX DISEASE
  12. AMLODIPINE [Concomitant]
     Indication: HYPERTENSION
  13. ASPIRIN [Concomitant]
     Indication: PROPHYLAXIS
  14. HYDROCODONE [Concomitant]
     Indication: PAIN
  15. TYLENOL [Concomitant]
     Indication: PAIN
  16. FERROUS SULFATE [Concomitant]
     Indication: ANAEMIA
  17. MULTIVITAMIN [Concomitant]
     Indication: PRODUCT USED FOR UNKNOWN INDICATION
  18. CALCIUM WITH VITAMIN D [Concomitant]
     Indication: PRODUCT USED FOR UNKNOWN INDICATION
  19. FOLIC ACID [Concomitant]
     Indication: SUPPLEMENTATION THERAPY

REACTIONS (6)
  - Defaecation urgency [Not Recovered/Not Resolved]
  - Device malfunction [Not Recovered/Not Resolved]
  - Drug dose omission [Not Recovered/Not Resolved]
  - Device malfunction [Not Recovered/Not Resolved]
  - Drug dose omission [Not Recovered/Not Resolved]
  - Drug dose omission [Not Recovered/Not Resolved]
